FAERS Safety Report 7829010-9 (Version None)
Quarter: 2011Q4

REPORT INFORMATION
  Report Type: 
  Country: None (occurrence: None)
  Receive Date: 20111020
  Receipt Date: 20111010
  Transmission Date: 20120403
  Serious: Yes (Hospitalization, Other)
  Sender: FDA-Public Use
  Company Number: TR-ELI_LILLY_AND_COMPANY-TR201110002116

PATIENT
  Age: 83 Year
  Sex: Female

DRUGS (4)
  1. HUMALOG MIX 75/25 [Suspect]
     Indication: DIABETES MELLITUS
     Dosage: 22 IU, EACH MORNING
     Route: 058
     Dates: start: 20040101
  2. HUMALOG MIX 75/25 [Suspect]
     Dosage: 15 IU, EACH EVENING
     Route: 058
     Dates: start: 20040101
  3. HYZAAR [Concomitant]
     Dosage: UNK, QD
     Route: 048
  4. BELOC                              /00376902/ [Concomitant]
     Dosage: 50 MG, QD
     Route: 048

REACTIONS (1)
  - BLOOD GLUCOSE INCREASED [None]
